FAERS Safety Report 6969670-8 (Version None)
Quarter: 2010Q3

REPORT INFORMATION
  Report Type: 
  Country: None (occurrence: None)
  Receive Date: 20100908
  Receipt Date: 20100831
  Transmission Date: 20110219
  Serious: Yes (Life-Threatening, Hospitalization)
  Sender: FDA-Public Use
  Company Number: US-US-EMD SERONO, INC.-7016262

PATIENT
  Sex: Female

DRUGS (1)
  1. REBIF [Suspect]
     Indication: PRODUCT USED FOR UNKNOWN INDICATION
     Dates: start: 20091008

REACTIONS (6)
  - BOWEL MOVEMENT IRREGULARITY [None]
  - CARDIAC ARREST [None]
  - HAEMORRHAGE [None]
  - HEART RATE IRREGULAR [None]
  - PLATELET COUNT DECREASED [None]
  - RESPIRATORY ARREST [None]
